FAERS Safety Report 23213065 (Version 1)
Quarter: 2023Q4

REPORT INFORMATION
  Report Type: Other
  Country: None (occurrence: IN)
  Receive Date: 20231121
  Receipt Date: 20231121
  Transmission Date: 20240109
  Serious: Yes (Life-Threatening)
  Sender: FDA-Public Use
  Company Number: IN-Vitruvias Therapeutics-2148521

PATIENT
  Age: 50 Year
  Sex: Male

DRUGS (1)
  1. LIDOCAINE [Suspect]
     Active Substance: LIDOCAINE

REACTIONS (1)
  - Angioedema [Recovered/Resolved]
